FAERS Safety Report 7782812-X (Version None)
Quarter: 2011Q3

REPORT INFORMATION
  Report Type: 
  Country: None (occurrence: None)
  Receive Date: 20110928
  Receipt Date: 20110922
  Transmission Date: 20111222
  Serious: Yes (Other)
  Sender: FDA-Public Use
  Company Number: CA-PFIZER INC-2011177528

PATIENT
  Age: 71 Year
  Sex: Male

DRUGS (4)
  1. XALATAN [Suspect]
     Indication: GLAUCOMA
     Dosage: 1 GTT IN BOTH EYES, 1X/DAY
     Route: 047
  2. AZOPT [Concomitant]
     Indication: GLAUCOMA
     Dosage: 1 GTT, 2X/DAY
     Route: 047
  3. LIPITOR [Concomitant]
     Indication: BLOOD CHOLESTEROL
     Dosage: 20 MG, 1X/DAY
     Route: 048
  4. COMBIGAN [Concomitant]
     Indication: GLAUCOMA
     Dosage: 1 GTT, 2X/DAY
     Route: 047

REACTIONS (1)
  - INTRAOCULAR PRESSURE TEST ABNORMAL [None]
